FAERS Safety Report 26047976 (Version 1)
Quarter: 2025Q4

REPORT INFORMATION
  Report Type: Spontaneous
  Country: CA (occurrence: CA)
  Receive Date: 20251114
  Receipt Date: 20251114
  Transmission Date: 20260117
  Serious: Yes (Life-Threatening, Hospitalization, Other)
  Sender: TAKEDA
  Company Number: CA-TAKEDA-2025TUS101316

PATIENT
  Age: 38 Year
  Sex: Male
  Weight: 167 kg

DRUGS (1)
  1. DEXLANSOPRAZOLE [Suspect]
     Active Substance: DEXLANSOPRAZOLE
     Indication: Gastrooesophageal reflux disease
     Dosage: 60 MILLIGRAM, QD

REACTIONS (4)
  - Haematuria [Recovered/Resolved]
  - Hypertensive crisis [Recovered/Resolved]
  - Proteinuria [Recovered/Resolved]
  - Tubulointerstitial nephritis [Recovered/Resolved]
